FAERS Safety Report 19837912 (Version 1)
Quarter: 2021Q3

REPORT INFORMATION
  Report Type: Spontaneous
  Country: DE (occurrence: DE)
  Receive Date: 20210916
  Receipt Date: 20210916
  Transmission Date: 20211014
  Serious: Yes (Hospitalization)
  Sender: FDA-Public Use
  Company Number: DE-TEVA-2021-DE-1951461

PATIENT
  Age: 76 Year
  Sex: Male

DRUGS (10)
  1. METFORMIN/SITAGLIPTIN [Concomitant]
     Active Substance: METFORMIN\SITAGLIPTIN
     Dosage: 2 DOSAGE FORMS DAILY; 500|50 MG, 1?0?1?0
  2. ATORVASTATIN [Concomitant]
     Active Substance: ATORVASTATIN
     Dosage: 40 MILLIGRAM DAILY;  0?0?1?0
  3. PANTOPRAZOL [Concomitant]
     Active Substance: PANTOPRAZOLE SODIUM
     Dosage: 40 MILLIGRAM DAILY;  1?0?0?0
  4. RISPERIDON [Suspect]
     Active Substance: RISPERIDONE
     Dosage: 1 MILLIGRAM DAILY;  1?0?1?0
  5. INSULIN GLARGIN [Concomitant]
     Active Substance: INSULIN GLARGINE
     Dosage: SCHEME
  6. TORASEMID [Concomitant]
     Active Substance: TORSEMIDE
     Dosage: 20 MILLIGRAM DAILY; , 0?0?1?0
  7. APIXABAN [Concomitant]
     Active Substance: APIXABAN
     Dosage: 2.5 MILLIGRAM DAILY; , 1?0?0?0
  8. BISOPROLOL [Concomitant]
     Active Substance: BISOPROLOL
     Dosage: 10 MILLIGRAM DAILY; 1?0?1?0
  9. EMPAGLIFLOZIN [Suspect]
     Active Substance: EMPAGLIFLOZIN
     Dosage: 10 MILLIGRAM DAILY;  1?0?0?0
  10. KALIUMCHLORID [Concomitant]
     Active Substance: POTASSIUM CHLORIDE
     Dosage: 600 MILLIGRAM DAILY;  1?0?0?0

REACTIONS (25)
  - Anuria [Unknown]
  - Hypotension [Unknown]
  - Apnoea [Unknown]
  - Nuchal rigidity [Unknown]
  - Tachycardia [Unknown]
  - Loss of consciousness [Unknown]
  - Renal impairment [Unknown]
  - Electrolyte imbalance [Unknown]
  - Hyperglycaemia [Unknown]
  - Systemic infection [Unknown]
  - Skin irritation [Unknown]
  - Dehydration [Unknown]
  - Tachypnoea [Unknown]
  - Bradypnoea [Unknown]
  - Pupils unequal [Unknown]
  - Decubitus ulcer [Unknown]
  - General physical health deterioration [Unknown]
  - Electrocardiogram abnormal [Unknown]
  - Condition aggravated [Unknown]
  - Cyanosis [Unknown]
  - Hypotonia [Unknown]
  - Skin pressure mark [Unknown]
  - Oedema peripheral [Unknown]
  - Disorientation [Unknown]
  - Dyspnoea [Unknown]
